FAERS Safety Report 8583548-8 (Version None)
Quarter: 2012Q3

REPORT INFORMATION
  Report Type: 
  Country: None (occurrence: None)
  Receive Date: 20120809
  Receipt Date: 20120802
  Transmission Date: 20120928
  Serious: Yes (Hospitalization)
  Sender: FDA-Public Use
  Company Number: US-B.I. PHARMACEUTICALS,INC./RIDGEFIELD-2012-BP-17462BP

PATIENT
  Sex: Female

DRUGS (7)
  1. SPIRONOLACTONE [Concomitant]
     Indication: CARDIAC DISORDER
     Route: 048
     Dates: start: 20010101
  2. COREG [Concomitant]
     Indication: CARDIAC DISORDER
     Dosage: 50 MG
     Route: 048
     Dates: start: 20010101
  3. ASPIRIN [Concomitant]
     Indication: CARDIAC ASSISTANCE DEVICE USER
     Dosage: 81 MG
     Route: 048
     Dates: start: 20010101
  4. LIPITOR [Concomitant]
     Dosage: 5 MG
     Route: 048
     Dates: start: 20010101
  5. FUROSEMIDE [Concomitant]
     Indication: CARDIAC DISORDER
     Dosage: 40 MG
     Route: 048
     Dates: start: 20010101
  6. PRADAXA [Suspect]
     Indication: CARDIAC ASSISTANCE DEVICE USER
     Dosage: 300 MG
     Route: 048
     Dates: start: 20120201, end: 20120518
  7. DIOVAN [Concomitant]
     Indication: CARDIAC DISORDER
     Dosage: 320 MG
     Route: 048
     Dates: start: 20010101

REACTIONS (5)
  - CONTUSION [None]
  - INTERNATIONAL NORMALISED RATIO INCREASED [None]
  - RENAL IMPAIRMENT [None]
  - JOINT STIFFNESS [None]
  - HAEMORRHAGE [None]
